FAERS Safety Report 12983970 (Version 1)
Quarter: 2016Q4

REPORT INFORMATION
  Report Type: Report from Study
  Country: CA (occurrence: MX)
  Receive Date: 20161129
  Receipt Date: 20161129
  Transmission Date: 20170207
  Serious: Yes (Hospitalization)
  Sender: FDA-Public Use
  Company Number: CA-JNJFOC-20161125705

PATIENT
  Age: 52 Year
  Sex: Female
  Weight: 124.74 kg

DRUGS (1)
  1. STELARA [Suspect]
     Active Substance: USTEKINUMAB
     Indication: PSORIASIS
     Route: 058
     Dates: start: 20130201

REACTIONS (2)
  - Psoriasis [Unknown]
  - Gastrectomy [Unknown]

NARRATIVE: CASE EVENT DATE: 2016
